FAERS Safety Report 4986658-7 (Version None)
Quarter: 2006Q2

REPORT INFORMATION
  Report Type: 
  Country: None (occurrence: None)
  Receive Date: 20060428
  Receipt Date: 20050207
  Transmission Date: 20061013
  Serious: Yes (Hospitalization, Other)
  Sender: FDA-Public Use
  Company Number: US-MERCK-0502USA00927

PATIENT
  Sex: Female
  Weight: 59 kg

DRUGS (1)
  1. VIOXX [Suspect]
     Indication: BACK PAIN
     Route: 048
     Dates: start: 19990208, end: 20040830

REACTIONS (18)
  - ANXIETY [None]
  - BACK PAIN [None]
  - BLADDER DISORDER [None]
  - CEREBROVASCULAR ACCIDENT [None]
  - CHEST PAIN [None]
  - COLLAPSE OF LUNG [None]
  - CONTUSION [None]
  - CYST [None]
  - DIZZINESS [None]
  - DYSPNOEA [None]
  - FALL [None]
  - LIMB INJURY [None]
  - NEPHROLITHIASIS [None]
  - PNEUMOTHORAX [None]
  - PYREXIA [None]
  - SLEEP DISORDER [None]
  - SYNCOPE [None]
  - URINARY INCONTINENCE [None]
